FAERS Safety Report 6753869-X (Version None)
Quarter: 2010Q2

REPORT INFORMATION
  Report Type: 
  Country: None (occurrence: None)
  Receive Date: 20100603
  Receipt Date: 20100528
  Transmission Date: 20101027
  Serious: Yes (Other)
  Sender: FDA-Public Use
  Company Number: US-B.I. PHARMACEUTICALS,INC./RIDGEFIELD-2010-BP-06020BP

PATIENT
  Age: 80 Year
  Sex: Female

DRUGS (7)
  1. TWYNSTA [Suspect]
     Indication: HYPERTENSION
     Dosage: DAILY DOSE:160MG/20MG
     Route: 048
     Dates: start: 20100301
  2. PLAVIX [Concomitant]
     Indication: ARTERIAL DISORDER
  3. LASIX [Concomitant]
     Indication: OEDEMA PERIPHERAL
  4. NEXIUM [Concomitant]
     Indication: ABDOMINAL DISCOMFORT
  5. PREMARIN [Concomitant]
     Indication: HYSTERECTOMY
  6. BENADRYL [Concomitant]
     Indication: ARTHROPOD BITE
  7. ATIVAN [Concomitant]
     Indication: SLEEP DISORDER

REACTIONS (8)
  - CONFUSIONAL STATE [None]
  - COUGH [None]
  - DIZZINESS [None]
  - DRUG INEFFECTIVE [None]
  - FATIGUE [None]
  - LIP SWELLING [None]
  - PALPITATIONS [None]
  - VISION BLURRED [None]
